FAERS Safety Report 23684064 (Version 1)
Quarter: 2024Q1

REPORT INFORMATION
  Report Type: Spontaneous
  Country: US (occurrence: US)
  Receive Date: 20240328
  Receipt Date: 20240328
  Transmission Date: 20240410
  Serious: No
  Sender: FDA-Public Use
  Company Number: US-TEVA-VS-3140157

PATIENT
  Age: 72 Year
  Sex: Female
  Weight: 56.7 kg

DRUGS (3)
  1. ESTRADIOL [Suspect]
     Active Substance: ESTRADIOL
     Indication: Uterine prolapse
     Dosage: ESTRADIOL 10 MCG VAGINAL INSERTS
     Route: 065
  2. VITAMINS [Concomitant]
     Active Substance: VITAMINS
  3. VITAMIN D [Concomitant]
     Active Substance: VITAMIN D NOS

REACTIONS (1)
  - Degenerative bone disease [Unknown]

NARRATIVE: CASE EVENT DATE: 20231223
